FAERS Safety Report 9679178 (Version 2)
Quarter: 2013Q4

REPORT INFORMATION
  Report Type: Report from Study
  Country: US (occurrence: US)
  Receive Date: 20131108
  Receipt Date: 20131118
  Transmission Date: 20140711
  Serious: Yes (Other)
  Sender: FDA-Public Use
  Company Number: US-BAXTER-2013BAX043983

PATIENT
  Age: 53 Year
  Sex: Female
  Weight: 58.11 kg

DRUGS (2)
  1. GAMMAGARD LIQUID [Suspect]
     Indication: HYPOGAMMAGLOBULINAEMIA
     Dosage: 6 GM/60 ML
     Route: 058
     Dates: start: 201207
  2. GAMMAGARD LIQUID [Suspect]
     Route: 042
     Dates: start: 201206, end: 201207

REACTIONS (4)
  - Urinary tract infection [Recovered/Resolved]
  - Ear infection [Recovered/Resolved]
  - Sinusitis [Recovered/Resolved]
  - Red blood cell sedimentation rate increased [Unknown]
